FAERS Safety Report 6771962-2 (Version None)
Quarter: 2010Q2

REPORT INFORMATION
  Report Type: 
  Country: None (occurrence: None)
  Receive Date: 20100616
  Receipt Date: 20090929
  Transmission Date: 20101027
  Serious: No
  Sender: FDA-Public Use
  Company Number: US-ASTRAZENECA-2009SE16341

PATIENT
  Age: 66 Year
  Sex: Female
  Weight: 83.9 kg

DRUGS (7)
  1. RHINOCORT [Suspect]
     Route: 045
  2. LEVOXYL [Concomitant]
  3. LISINOPRIL [Concomitant]
  4. PSEUDOPHEDRINE [Concomitant]
  5. ALLEGRA [Concomitant]
  6. TYLENOL [Concomitant]
  7. IRON [Concomitant]

REACTIONS (2)
  - ACCIDENTAL EXPOSURE [None]
  - EYE PRURITUS [None]
